FAERS Safety Report 21161813 (Version 1)
Quarter: 2022Q3

REPORT INFORMATION
  Report Type: Spontaneous
  Country: TN (occurrence: TN)
  Receive Date: 20220802
  Receipt Date: 20220802
  Transmission Date: 20221027
  Serious: Yes (Other)
  Sender: FDA-Public Use
  Company Number: TN-MACLEODS PHARMACEUTICALS US LTD-MAC2022036634

PATIENT

DRUGS (5)
  1. LEVOFLOXACIN [Suspect]
     Active Substance: LEVOFLOXACIN
     Indication: Upper respiratory tract infection
     Dosage: 1000  MILLIGRAM, QD
     Route: 065
     Dates: start: 201310
  2. LEVOFLOXACIN [Suspect]
     Active Substance: LEVOFLOXACIN
     Dosage: 500 MILLIGRAM, QD
     Route: 065
     Dates: start: 201310
  3. METRONIDAZOLE [Concomitant]
     Active Substance: METRONIDAZOLE
     Indication: Upper respiratory tract infection
     Dosage: 1000  MILLIGRAM, QD
     Route: 065
  4. ACETAMINOPHEN [Concomitant]
     Active Substance: ACETAMINOPHEN
     Indication: Upper respiratory tract infection
     Dosage: 1000 MILLIGRAM, QD
     Route: 065
  5. BICLOTYMOL [Concomitant]
     Active Substance: BICLOTYMOL
     Indication: Upper respiratory tract infection
     Dosage: UNK, TID (ANTISEPTIC)
     Route: 048

REACTIONS (1)
  - Drug reaction with eosinophilia and systemic symptoms [Recovered/Resolved]
